FAERS Safety Report 11491400 (Version 2)
Quarter: 2018Q4

REPORT INFORMATION
  Report Type: Spontaneous
  Country: PL (occurrence: PL)
  Receive Date: 20150910
  Receipt Date: 20181210
  Transmission Date: 20190204
  Serious: Yes (Hospitalization, Other)
  Sender: FDA-Public Use
  Company Number: PL-TEVA-591992ISR

PATIENT
  Age: 28 Year
  Sex: Female

DRUGS (7)
  1. ACETYLSALICYLIC ACID [Suspect]
     Active Substance: ASPIRIN
     Dosage: 75 MILLIGRAM DAILY;
     Route: 065
  2. ENOXAPARIN [Concomitant]
     Active Substance: ENOXAPARIN
     Dosage: 60 MILLIGRAM DAILY;
     Route: 058
  3. METOPROLOL. [Suspect]
     Active Substance: METOPROLOL
     Dosage: 50 MILLIGRAM DAILY;
     Route: 065
  4. SOTALOL. [Concomitant]
     Active Substance: SOTALOL
     Dosage: 40 MILLIGRAM DAILY;
     Route: 065
  5. PROGESTERONE. [Concomitant]
     Active Substance: PROGESTERONE
     Dosage: 200 MILLIGRAM DAILY;
     Route: 067
  6. DROTAVERINE [Concomitant]
     Active Substance: DROTAVERINE
     Dosage: 120 MILLIGRAM DAILY;
     Route: 065
  7. DYDROGESTERONE [Concomitant]
     Active Substance: DYDROGESTERONE
     Dosage: 20 MILLIGRAM DAILY;
     Route: 065

REACTIONS (4)
  - Premature separation of placenta [Recovered/Resolved]
  - Genital haemorrhage [Recovered/Resolved]
  - Normal newborn [Unknown]
  - Maternal exposure during pregnancy [Unknown]
